FAERS Safety Report 4902043-8 (Version None)
Quarter: 2006Q1

REPORT INFORMATION
  Report Type: 
  Country: None (occurrence: None)
  Receive Date: 20060202
  Receipt Date: 20060202
  Transmission Date: 20060701
  Serious: Yes (Other)
  Sender: FDA-Public Use
  Company Number: None

PATIENT
  Age: 62 Year
  Sex: Female
  Weight: 71.5 kg

DRUGS (6)
  1. LYRICA [Suspect]
     Indication: NEURALGIA
     Dosage: 50MG TID  ; 100MG TID
     Dates: start: 20051215
  2. LYRICA [Suspect]
     Indication: NEURALGIA
     Dosage: 50MG TID  ; 100MG TID
     Dates: start: 20051221
  3. LISINOPRIL [Concomitant]
  4. LEVOTHYROXINE SODIUM [Concomitant]
  5. BUSPIRONE [Concomitant]
  6. APAP TAB [Concomitant]

REACTIONS (3)
  - LEUKOPENIA [None]
  - NEUTROPENIA [None]
  - PLATELET DISORDER [None]
